FAERS Safety Report 6999515-1 (Version None)
Quarter: 2010Q3

REPORT INFORMATION
  Report Type: 
  Country: None (occurrence: None)
  Receive Date: 20100920
  Receipt Date: 20100429
  Transmission Date: 20110219
  Serious: No
  Sender: FDA-Public Use
  Company Number: US-ASTRAZENECA-2010SE19526

PATIENT
  Sex: Male

DRUGS (1)
  1. SEROQUEL XR [Suspect]
     Route: 048

REACTIONS (6)
  - ANXIETY [None]
  - BIPOLAR DISORDER [None]
  - CONVULSION [None]
  - HALLUCINATION [None]
  - PALPITATIONS [None]
  - WITHDRAWAL SYNDROME [None]
